FAERS Safety Report 18242180 (Version 10)
Quarter: 2022Q1

REPORT INFORMATION
  Report Type: Spontaneous
  Country: US (occurrence: US)
  Receive Date: 20200908
  Receipt Date: 20220106
  Transmission Date: 20220424
  Serious: No
  Sender: FDA-Public Use
  Company Number: US-PFIZER INC-2020304453

PATIENT
  Age: 5 Year
  Sex: Male
  Weight: 30.84 kg

DRUGS (2)
  1. GENOTROPIN [Suspect]
     Active Substance: SOMATROPIN
     Indication: Prader-Willi syndrome
     Dosage: 0.8 MG, DAILY
     Dates: start: 201607
  2. GENOTROPIN [Suspect]
     Active Substance: SOMATROPIN
     Dosage: 0.8 MG, 1X/DAY (AT NIGHT)
     Route: 058

REACTIONS (4)
  - Malaise [Unknown]
  - Product quality issue [Unknown]
  - Drug dose omission by device [Unknown]
  - Device breakage [Unknown]
